FAERS Safety Report 18149918 (Version 1)
Quarter: 2020Q3

REPORT INFORMATION
  Report Type: Spontaneous
  Country: US (occurrence: US)
  Receive Date: 20200813
  Receipt Date: 20200813
  Transmission Date: 20201103
  Serious: Yes (Hospitalization)
  Sender: FDA-Public Use
  Company Number: None

PATIENT
  Sex: Male

DRUGS (1)
  1. ONDANSETRON HYDROCHLORIDE 4 MG/2ML APOTEX [Suspect]
     Active Substance: ONDANSETRON HYDROCHLORIDE
     Indication: PANCREATIC CARCINOMA
     Dosage: OTHER FREQUENCY:EVERY 2 WEEKS;OTHER ROUTE:INFUSION?
     Dates: start: 20200102

REACTIONS (2)
  - Cholecystectomy [None]
  - Infection [None]
